FAERS Safety Report 8171327-5 (Version None)
Quarter: 2012Q1

REPORT INFORMATION
  Report Type: 
  Country: None (occurrence: None)
  Receive Date: 20120228
  Receipt Date: 20120221
  Transmission Date: 20120608
  Serious: Yes (Hospitalization, Disabling)
  Sender: FDA-Public Use
  Company Number: US-MERCK-1112USA03023

PATIENT
  Age: 68 Year
  Sex: Female
  Weight: 88 kg

DRUGS (6)
  1. BONIVA [Suspect]
     Indication: OSTEOPOROSIS
     Route: 065
     Dates: start: 20060331
  2. FOSAMAX [Suspect]
     Indication: OSTEOPOROSIS
     Route: 048
     Dates: start: 20000101, end: 20060226
  3. FOSAMAX [Suspect]
     Indication: OSTEOPOROSIS PROPHYLAXIS
     Route: 048
     Dates: start: 20000101, end: 20060226
  4. VITAMIN D (UNSPECIFIED) [Concomitant]
     Route: 048
     Dates: start: 20110101
  5. BONIVA [Suspect]
     Indication: OSTEOPOROSIS PROPHYLAXIS
     Route: 065
     Dates: start: 20060331
  6. MULTI-VITAMINS [Concomitant]
     Route: 048

REACTIONS (23)
  - ANXIETY [None]
  - TACHYCARDIA [None]
  - ATELECTASIS [None]
  - TYPE 2 DIABETES MELLITUS [None]
  - RIB FRACTURE [None]
  - BLOOD DISORDER [None]
  - PYREXIA [None]
  - SKELETAL INJURY [None]
  - HYPERLIPIDAEMIA [None]
  - FALL [None]
  - FEMUR FRACTURE [None]
  - LOW TURNOVER OSTEOPATHY [None]
  - UPPER LIMB FRACTURE [None]
  - PNEUMONIA [None]
  - HYPOTHYROIDISM [None]
  - CONSTIPATION [None]
  - LUNG DISORDER [None]
  - HYPERTENSION [None]
  - RESPIRATORY DISORDER [None]
  - IMPLANT SITE REACTION [None]
  - BODY MASS INDEX INCREASED [None]
  - IMPAIRED HEALING [None]
  - PLEURAL FIBROSIS [None]
